FAERS Safety Report 25894515 (Version 1)
Quarter: 2025Q4

REPORT INFORMATION
  Report Type: Spontaneous
  Country: EU (occurrence: EU)
  Receive Date: 20251008
  Receipt Date: 20251008
  Transmission Date: 20260117
  Serious: Yes (Hospitalization)
  Sender: ROCHE
  Company Number: EU-ROCHE-10000397865

PATIENT
  Sex: Male

DRUGS (1)
  1. TECENTRIQ [Suspect]
     Active Substance: ATEZOLIZUMAB
     Indication: Non-small cell lung cancer metastatic
     Route: 065

REACTIONS (5)
  - Adrenal insufficiency [Unknown]
  - Pneumonia [Unknown]
  - Infective exacerbation of chronic obstructive airways disease [Unknown]
  - Presyncope [Unknown]
  - Gastroenteritis [Unknown]
